FAERS Safety Report 20600785 (Version 2)
Quarter: 2022Q2

REPORT INFORMATION
  Report Type: Spontaneous
  Country: US (occurrence: US)
  Receive Date: 20220316
  Receipt Date: 20220525
  Transmission Date: 20220721
  Serious: Yes (Other)
  Sender: FDA-Public Use
  Company Number: US-SA-SAC20220314002041

PATIENT
  Age: 56 Year
  Sex: Male

DRUGS (1)
  1. ZANTAC [Suspect]
     Active Substance: RANITIDINE HYDROCHLORIDE
     Indication: Dyspepsia
     Dosage: 75 MG, QD
     Route: 065
     Dates: start: 201501, end: 202001

REACTIONS (3)
  - Oesophageal carcinoma [Recovering/Resolving]
  - Hepatic cancer stage IV [Recovering/Resolving]
  - Gastric cancer stage IV [Recovering/Resolving]

NARRATIVE: CASE EVENT DATE: 20200101
